FAERS Safety Report 13039044 (Version 4)
Quarter: 2017Q1

REPORT INFORMATION
  Report Type: Spontaneous
  Country: AU (occurrence: AU)
  Receive Date: 20161219
  Receipt Date: 20170314
  Transmission Date: 20170428
  Serious: No
  Sender: FDA-Public Use
  Company Number: AU-AMGEN-AUSSP2016176814

PATIENT
  Age: 75 Year
  Sex: Female
  Weight: 74.7 kg

DRUGS (2)
  1. PROLIA [Suspect]
     Active Substance: DENOSUMAB
     Indication: PRODUCT USED FOR UNKNOWN INDICATION
     Dosage: 60 MG/ML, Q6MO
     Route: 058
     Dates: start: 20160329
  2. CALCIUM OXIDE [Concomitant]
     Indication: OSTEOPOROSIS
     Dosage: 500UL/150 MG, UNK

REACTIONS (1)
  - Tooth fracture [Recovered/Resolved]

NARRATIVE: CASE EVENT DATE: 20160511
